FAERS Safety Report 6053009-9 (Version None)
Quarter: 2009Q1

REPORT INFORMATION
  Report Type: 
  Country: None (occurrence: None)
  Receive Date: 20090127
  Receipt Date: 20090113
  Transmission Date: 20090719
  Serious: No
  Sender: FDA-Public Use
  Company Number: BR-ASTRAZENECA-2009UW01189

PATIENT
  Age: 34 Year
  Sex: Female
  Weight: 70 kg

DRUGS (1)
  1. ZOLADEX [Suspect]
     Indication: ENDOMETRIOSIS
     Dosage: 10.8
     Route: 058
     Dates: start: 20080501, end: 20081101

REACTIONS (6)
  - DIZZINESS [None]
  - HOT FLUSH [None]
  - ILL-DEFINED DISORDER [None]
  - MALAISE [None]
  - MIGRAINE [None]
  - PAIN [None]
